FAERS Safety Report 17313921 (Version 2)
Quarter: 2020Q1

REPORT INFORMATION
  Report Type: Spontaneous
  Country: US (occurrence: US)
  Receive Date: 20200124
  Receipt Date: 20200229
  Transmission Date: 20200409
  Serious: Yes (Other)
  Sender: FDA-Public Use
  Company Number: US-ROCHE-2531763

PATIENT
  Age: 74 Year
  Sex: Male

DRUGS (1)
  1. ESBRIET [Suspect]
     Active Substance: PIRFENIDONE
     Indication: IDIOPATHIC PULMONARY FIBROSIS
     Route: 048
     Dates: start: 20190918

REACTIONS (4)
  - Cough [Unknown]
  - Vomiting [Unknown]
  - Decreased appetite [Unknown]
  - Pulmonary pain [Unknown]

NARRATIVE: CASE EVENT DATE: 20191228
